FAERS Safety Report 5125275-5 (Version None)
Quarter: 2006Q4

REPORT INFORMATION
  Report Type: 
  Country: None (occurrence: None)
  Receive Date: 20061006
  Receipt Date: 20060922
  Transmission Date: 20070319
  Serious: Yes (Other)
  Sender: FDA-Public Use
  Company Number: 2006S1009075

PATIENT

DRUGS (2)
  1. CLOZAPINE [Suspect]
     Dosage: PO
     Route: 048
  2. BENZODIAZEPINE DERIVATIVES [Suspect]

REACTIONS (1)
  - CONVULSION [None]
